FAERS Safety Report 7321201-9 (Version None)
Quarter: 2011Q1

REPORT INFORMATION
  Report Type: 
  Country: None (occurrence: None)
  Receive Date: 20110228
  Receipt Date: 20110216
  Transmission Date: 20110831
  Serious: No
  Sender: FDA-Public Use
  Company Number: US-JNJFOC-20110205531

PATIENT
  Age: 46 Year
  Sex: Female

DRUGS (9)
  1. INVEGA SUSTENNA [Suspect]
     Indication: SCHIZOAFFECTIVE DISORDER
     Route: 030
  2. CLONAZEPAM [Concomitant]
     Route: 048
  3. LYRICA [Concomitant]
     Route: 048
  4. ZONEGRAN [Concomitant]
     Route: 048
  5. BENZTROPINE MESYLATE [Concomitant]
     Route: 048
  6. SEROQUEL [Concomitant]
     Route: 048
  7. IBUPROFEN [Concomitant]
     Route: 048
  8. SEREVENT [Concomitant]
     Route: 048
  9. WELLBUTRIN [Concomitant]
     Route: 048

REACTIONS (1)
  - INCORRECT DOSE ADMINISTERED [None]
